FAERS Safety Report 5352516-1 (Version None)
Quarter: 2007Q2

REPORT INFORMATION
  Report Type: 
  Country: None (occurrence: None)
  Receive Date: 20070518
  Receipt Date: 20060704
  Transmission Date: 20071010
  Serious: Yes (Death, Hospitalization)
  Sender: FDA-Public Use
  Company Number: DE-2006-017837

PATIENT
  Age: 66 Year
  Sex: Male
  Weight: 82 kg

DRUGS (1)
  1. QUADRAMET [Suspect]
     Indication: ANALGESIC THERAPY
     Dosage: 3100 MBQ, 1 DOSE, INJECTION
     Dates: start: 20010621, end: 20010621

REACTIONS (4)
  - KARNOFSKY SCALE WORSENED [None]
  - PAIN [None]
  - PERFORMANCE STATUS DECREASED [None]
  - SPINAL FRACTURE [None]
